FAERS Safety Report 8214233-X (Version None)
Quarter: 2012Q1

REPORT INFORMATION
  Report Type: 
  Country: None (occurrence: None)
  Receive Date: 20120315
  Receipt Date: 20120315
  Transmission Date: 20120608
  Serious: Yes (Other)
  Sender: FDA-Public Use
  Company Number: None

PATIENT
  Sex: Female
  Weight: 28.5766 kg

DRUGS (5)
  1. HYDROXYCHLOROQUINE SULFATE [Suspect]
     Dosage: 450 L DAILY ORAL
     Route: 048
     Dates: start: 20111001
  2. PLAQUENIL [Concomitant]
  3. TOPAMAX [Concomitant]
  4. NASACORT [Concomitant]
  5. ACTONEL [Concomitant]

REACTIONS (3)
  - NAUSEA [None]
  - VOMITING [None]
  - ABDOMINAL PAIN UPPER [None]
